FAERS Safety Report 10873595 (Version 1)
Quarter: 2015Q1

REPORT INFORMATION
  Report Type: Spontaneous
  Country: US (occurrence: None)
  Receive Date: 20150223
  Receipt Date: 20150223
  Transmission Date: 20150721
  Serious: Yes (Hospitalization)
  Sender: FDA-Public Use
  Company Number: None

PATIENT
  Age: 74 Year
  Sex: Male
  Weight: 78.2 kg

DRUGS (7)
  1. HYDROXUREA 500MG [Concomitant]
  2. CHEMO/RT [Concomitant]
  3. 5FU [Suspect]
     Active Substance: FLUOROURACIL
     Dosage: CONTINUOUS IV
     Route: 042
  4. TAXOL [Suspect]
     Active Substance: PACLITAXEL
     Dosage: EVERY OTHER WEEK
     Route: 042
  5. TAXOL [Concomitant]
     Active Substance: PACLITAXEL
  6. RT BID [Concomitant]
  7. 5FU [Concomitant]
     Active Substance: FLUOROURACIL

REACTIONS (1)
  - Febrile neutropenia [None]

NARRATIVE: CASE EVENT DATE: 20150219
